FAERS Safety Report 9051528 (Version 1)
Quarter: 2013Q1

REPORT INFORMATION
  Report Type: Spontaneous
  Country: US (occurrence: US)
  Receive Date: 20130207
  Receipt Date: 20130207
  Transmission Date: 20140127
  Serious: No
  Sender: FDA-Public Use
  Company Number: US-009507513-1302USA002450

PATIENT
  Age: 63 Year
  Sex: Female

DRUGS (3)
  1. NASONEX [Suspect]
     Indication: HYPERSENSITIVITY
     Dosage: UNK
     Route: 045
  2. ADVAIR [Concomitant]
  3. SPIRIVA [Concomitant]

REACTIONS (1)
  - Nausea [Recovered/Resolved]
